FAERS Safety Report 20995452 (Version 1)
Quarter: 2022Q2

REPORT INFORMATION
  Report Type: Spontaneous
  Country: US (occurrence: US)
  Receive Date: 20220622
  Receipt Date: 20220622
  Transmission Date: 20220721
  Serious: Yes (Hospitalization)
  Sender: FDA-Public Use
  Company Number: US-BRISTOL-MYERS SQUIBB COMPANY-2022-059204

PATIENT
  Age: 75 Year
  Sex: Male
  Weight: 92.5 kg

DRUGS (13)
  1. ELIQUIS [Suspect]
     Active Substance: APIXABAN
     Indication: Cerebrovascular accident prophylaxis
     Dosage: DOSE : UNAVAILABLE (NOT PROVIDED);     FREQ : TWO TIMES A DAY
     Route: 048
     Dates: start: 202202
  2. CARISOPRODOL [Concomitant]
     Active Substance: CARISOPRODOL
  3. CILOSTAZOL [Concomitant]
     Active Substance: CILOSTAZOL
  4. CITALOPRAM [Concomitant]
     Active Substance: CITALOPRAM HYDROBROMIDE
  5. DALIRESP [Concomitant]
     Active Substance: ROFLUMILAST
     Dosage: 500
  6. FLECAINIDE [Concomitant]
     Active Substance: FLECAINIDE
  7. GABAPENTIN [Concomitant]
     Active Substance: GABAPENTIN
  8. LORATADINE [Concomitant]
     Active Substance: LORATADINE
  9. METOPROLOL TARTRATE [Concomitant]
     Active Substance: METOPROLOL TARTRATE
  10. NORTRIPTYLINE [Concomitant]
     Active Substance: NORTRIPTYLINE
  11. SPIRIVA RESPIMAT [Concomitant]
     Active Substance: TIOTROPIUM BROMIDE
  12. ALBUTEROL [Concomitant]
     Active Substance: ALBUTEROL
  13. BREO ELLIPTA [Concomitant]
     Active Substance: FLUTICASONE FUROATE\VILANTEROL TRIFENATATE

REACTIONS (2)
  - Hospitalisation [Unknown]
  - Product storage error [Unknown]

NARRATIVE: CASE EVENT DATE: 20220615
